FAERS Safety Report 6652994-1 (Version None)
Quarter: 2010Q1

REPORT INFORMATION
  Report Type: 
  Country: None (occurrence: None)
  Receive Date: 20100326
  Receipt Date: 20100315
  Transmission Date: 20100710
  Serious: Yes (Hospitalization, Other)
  Sender: FDA-Public Use
  Company Number: PHHY2010PL15959

PATIENT
  Age: 34 Year
  Sex: Female

DRUGS (5)
  1. METOPROLOL [Suspect]
     Dosage: UNK
  2. DIHYDRALAZINE [Suspect]
     Dosage: UNK
  3. MAGNESIUM SULFATE [Suspect]
     Dosage: UNK
  4. DIAZEPAM [Suspect]
     Dosage: UNK
  5. METHYLDOPA [Suspect]
     Dosage: UNK

REACTIONS (9)
  - BLOOD PRESSURE INCREASED [None]
  - CAESAREAN SECTION [None]
  - DRUG EXPOSURE DURING PREGNANCY [None]
  - HEADACHE [None]
  - PREMATURE LABOUR [None]
  - RETROPLACENTAL HAEMATOMA [None]
  - TRANSVERSE PRESENTATION [None]
  - VAGINAL HAEMORRHAGE [None]
  - VISION BLURRED [None]
